FAERS Safety Report 11872535 (Version 4)
Quarter: 2017Q1

REPORT INFORMATION
  Report Type: Spontaneous
  Country: BR (occurrence: BR)
  Receive Date: 20151228
  Receipt Date: 20170309
  Transmission Date: 20170428
  Serious: Yes (Hospitalization, Other)
  Sender: FDA-Public Use
  Company Number: BR-JNJFOC-20151220706

PATIENT
  Age: 66 Year
  Sex: Female
  Weight: 56.3 kg

DRUGS (11)
  1. REMICADE [Suspect]
     Active Substance: INFLIXIMAB
     Indication: RHEUMATOID ARTHRITIS
     Route: 042
  2. REMICADE [Suspect]
     Active Substance: INFLIXIMAB
     Indication: RHEUMATOID ARTHRITIS
     Route: 042
  3. LEVOID [Concomitant]
     Active Substance: LEVOTHYROXINE
     Route: 065
  4. REMICADE [Suspect]
     Active Substance: INFLIXIMAB
     Indication: RHEUMATOID ARTHRITIS
     Route: 042
     Dates: start: 20140106
  5. REMICADE [Suspect]
     Active Substance: INFLIXIMAB
     Indication: RHEUMATOID ARTHRITIS
     Route: 042
     Dates: start: 20150910
  6. REMICADE [Suspect]
     Active Substance: INFLIXIMAB
     Indication: RHEUMATOID ARTHRITIS
     Route: 042
  7. NOVALGINA [Concomitant]
     Active Substance: METAMIZOLE SODIUM
     Route: 065
  8. REMICADE [Suspect]
     Active Substance: INFLIXIMAB
     Indication: RHEUMATOID ARTHRITIS
     Route: 042
     Dates: start: 2014
  9. CALCIUM [Concomitant]
     Active Substance: CALCIUM
     Route: 065
  10. METHOTREXATE. [Concomitant]
     Active Substance: METHOTREXATE
     Route: 065
  11. FOLIC ACID. [Concomitant]
     Active Substance: FOLIC ACID
     Route: 065

REACTIONS (8)
  - Knee operation [Recovering/Resolving]
  - Drug ineffective [Unknown]
  - Weight fluctuation [Unknown]
  - Limb operation [Recovering/Resolving]
  - Musculoskeletal stiffness [Unknown]
  - Chondropathy [Recovering/Resolving]
  - Cataract [Unknown]
  - Finger deformity [Unknown]

NARRATIVE: CASE EVENT DATE: 20150718
